FAERS Safety Report 8953443 (Version 1)
Quarter: 2012Q4

REPORT INFORMATION
  Report Type: 
  Country: US (occurrence: US)
  Receive Date: 20121206
  Receipt Date: 20121206
  Transmission Date: 20130627
  Serious: Yes (Death)
  Sender: FDA-Public Use
  Company Number: US-GLAXOSMITHKLINE-A1003553A

PATIENT
  Age: 60 Year
  Sex: Female

DRUGS (2)
  1. VOTRIENT [Suspect]
     Indication: LEIOMYOSARCOMA
     Route: 048
     Dates: end: 201204
  2. NO CONCURRENT MEDICATION [Concomitant]

REACTIONS (1)
  - Neoplasm malignant [Fatal]
